FAERS Safety Report 9354284 (Version 2)
Quarter: 2016Q1

REPORT INFORMATION
  Report Type: Spontaneous
  Country: US (occurrence: US)
  Receive Date: 20130618
  Receipt Date: 20160105
  Transmission Date: 20160526
  Serious: No
  Sender: FDA-Public Use
  Company Number: US-COVIDIEN/TYCO HEALTHCARE/MALLINCKRODT-T201203233

PATIENT
  Age: 65 Year
  Sex: Female

DRUGS (6)
  1. ULTRATAG RBC [Suspect]
     Active Substance: STANNOUS CHLORIDE
     Indication: MULTIPLE GATED ACQUISITION SCAN
     Dosage: UNK
     Dates: start: 2011, end: 2011
  2. XELODA [Concomitant]
     Active Substance: CAPECITABINE
  3. GEMZAR [Concomitant]
     Active Substance: GEMCITABINE HYDROCHLORIDE
  4. ULTRA-TECHNEKOW DTE GENERATOR [Concomitant]
     Active Substance: TECHNETIUM TC-99M
     Dosage: UNK
     Dates: start: 2011, end: 2011
  5. HERCEPTIN [Concomitant]
     Active Substance: TRASTUZUMAB
  6. TYKERB [Concomitant]
     Active Substance: LAPATINIB DITOSYLATE

REACTIONS (1)
  - Drug ineffective [Unknown]

NARRATIVE: CASE EVENT DATE: 2011
